FAERS Safety Report 9199472 (Version 3)
Quarter: 2013Q3

REPORT INFORMATION
  Report Type: Spontaneous
  Country: US (occurrence: US)
  Receive Date: 20130329
  Receipt Date: 20130729
  Transmission Date: 20140515
  Serious: Yes (Hospitalization, Other)
  Sender: FDA-Public Use
  Company Number: US-009507513-1303USA012854

PATIENT
  Sex: Female

DRUGS (6)
  1. NUVARING [Suspect]
     Indication: CONTRACEPTION
     Dosage: UNK; IN 3 WEEKS, OUT 1 WEEK
     Route: 067
     Dates: start: 20080619, end: 20090404
  2. NUVARING [Suspect]
     Dosage: UNK; IN 3 WEEKS, OUT 1 WEEK
     Route: 067
     Dates: start: 20070824, end: 200709
  3. ADDERALL TABLETS [Suspect]
     Indication: ATTENTION DEFICIT/HYPERACTIVITY DISORDER
     Dosage: UNK
     Dates: start: 20090404
  4. XANAX [Concomitant]
     Indication: DEPRESSION
  5. PRISTIQ [Concomitant]
     Indication: DEPRESSION
     Dosage: 50 MG, UNK
  6. LAMICTAL [Concomitant]
     Indication: PRODUCT USED FOR UNKNOWN INDICATION
     Dosage: UNK
     Dates: start: 20080619

REACTIONS (7)
  - Haemorrhagic disorder [Unknown]
  - Ischaemic cerebral infarction [Recovering/Resolving]
  - Fall [Unknown]
  - Metrorrhagia [Unknown]
  - Dysmenorrhoea [Unknown]
  - Menstruation irregular [Unknown]
  - Inappropriate schedule of drug administration [Unknown]
